FAERS Safety Report 24681851 (Version 1)
Quarter: 2024Q4

REPORT INFORMATION
  Report Type: Report from Study
  Country: ES (occurrence: ES)
  Receive Date: 20241130
  Receipt Date: 20241130
  Transmission Date: 20250115
  Serious: Yes (Other)
  Sender: TEVA
  Company Number: ES-TEVA-VS-3268354

PATIENT
  Age: 62 Year
  Sex: Female

DRUGS (16)
  1. TERIPARATIDE [Suspect]
     Active Substance: TERIPARATIDE
     Indication: Osteoporosis
     Route: 065
     Dates: start: 20240917
  2. LORMETAZEPAM [Concomitant]
     Active Substance: LORMETAZEPAM
     Indication: Depression
     Dosage: START DATE: LONG TIME AGO; DOSAGE:0-0-1
  3. Jengibre [Concomitant]
     Indication: Inflammation
     Dosage: START DATE: LONG TIME AGO; ONGOING
     Route: 065
  4. HERBALS\TURMERIC [Concomitant]
     Active Substance: HERBALS\TURMERIC
     Indication: Osteoarthritis
     Dosage: START DATE: LONG TIME AGO;ONGOING
     Route: 065
  5. PLANTAGO MAJOR LEAF [Concomitant]
     Active Substance: PLANTAGO MAJOR LEAF
     Indication: Constipation
     Dosage: ALTERNATING WITH MAGNESIUM?START DATE: LONG TIME AGO;ONGOING
     Route: 065
  6. MAGNESIUM CITRATE [Concomitant]
     Active Substance: MAGNESIUM CITRATE
     Indication: Constipation
     Dosage: DOSAGE: ALTERNATING WITH PLANTAGO?START DATE: LONG TIME AGO;ONGOING
     Route: 065
  7. CLORAZEPATE DIPOTASSIUM [Concomitant]
     Active Substance: CLORAZEPATE DIPOTASSIUM
     Indication: Insomnia
     Dosage: DOSAGE: IF NEEDED?START DATE: LONG TIME AGO;ONGOING
     Route: 065
  8. RIFAXIMIN [Concomitant]
     Active Substance: RIFAXIMIN
     Indication: Irritable bowel syndrome
     Dosage: DOSAGE: NO REFERENCE?START DATE: LONG TIME AGO;ONGOING
     Route: 065
  9. Neomicina [Concomitant]
     Indication: Irritable bowel syndrome
     Dosage: DOSAGE: NO REFERENCE?START DATE: LONG TIME AGO ;ONGOING
     Route: 065
  10. SODIUM CHONDROITIN SULFATE [Concomitant]
     Active Substance: SODIUM CHONDROITIN SULFATE
     Indication: Osteoarthritis
     Dosage: DOSAGE: NO REFERENCE?START DATE: LONG TIME AGO;ONGOING
     Route: 065
  11. OMEPRAZOLE [Concomitant]
     Active Substance: OMEPRAZOLE
     Indication: Hiatus hernia
     Dosage: DOSAGE: 1-0-0?START DATE: LONG TIME AGO; ONGOING
     Route: 065
  12. TRYPTIZOL [Concomitant]
     Active Substance: AMITRIPTYLINE HYDROCHLORIDE
     Indication: Depression
     Dosage: DOSAGE: NO REFERENCE?START DATE: LONG TIME AGO; ONGOING
     Route: 065
  13. CYMBALTA [Concomitant]
     Active Substance: DULOXETINE HYDROCHLORIDE
     Indication: Depression
     Dosage: DOSAGE: 60-60-0?START DATE: LONG TIME AGO ONGOING
     Route: 065
  14. TRAMADOL HYDROCHLORIDE [Concomitant]
     Active Substance: TRAMADOL HYDROCHLORIDE
     Indication: Fibromyalgia
     Dosage: DOSAGE: NO REFERENCE?START DATE: LONG TIME AGO; ONGOING
     Route: 065
  15. CALCIFEDIOL [Concomitant]
     Active Substance: CALCIFEDIOL
     Indication: Osteoporosis
     Dosage: DOSAGE: 1 C/15 DAYS?START DATE: LONG TIME AGO;ONGOING
  16. RIVOTRIL [Concomitant]
     Active Substance: CLONAZEPAM
     Indication: Fibromyalgia
     Dosage: START DATE: LONG TIME AGO; ONGOING

REACTIONS (4)
  - Neuralgia [Not Recovered/Not Resolved]
  - Headache [Not Recovered/Not Resolved]
  - Dizziness [Recovered/Resolved]
  - Product dose omission issue [Unknown]

NARRATIVE: CASE EVENT DATE: 20240917
